FAERS Safety Report 21339119 (Version 1)
Quarter: 2022Q3

REPORT INFORMATION
  Report Type: Spontaneous
  Country: US (occurrence: US)
  Receive Date: 20220915
  Receipt Date: 20220915
  Transmission Date: 20221027
  Serious: No
  Sender: FDA-Public Use
  Company Number: US-TAKEDA-2022TUS063092

PATIENT
  Sex: Female
  Weight: 79 kg

DRUGS (4)
  1. ULORIC [Suspect]
     Active Substance: FEBUXOSTAT
     Indication: Gout
     Dosage: 40 MILLIGRAM, QD
     Route: 065
  2. CELLCEPT [Concomitant]
     Active Substance: MYCOPHENOLATE MOFETIL
     Indication: Renal transplant
     Dosage: UNK
     Route: 065
  3. HYDROXYZINE HYDROCHLORIDE [Concomitant]
     Active Substance: HYDROXYZINE HYDROCHLORIDE
     Indication: Renal transplant
     Dosage: UNK UNK, BID
     Route: 065
  4. SOTALOL [Concomitant]
     Active Substance: SOTALOL
     Indication: Palpitations
     Dosage: UNK
     Route: 065

REACTIONS (6)
  - Therapy interrupted [Unknown]
  - Back disorder [Unknown]
  - Feeding disorder [Unknown]
  - Product dose omission issue [Unknown]
  - Decreased appetite [Unknown]
  - Weight decreased [Unknown]
